FAERS Safety Report 15479013 (Version 1)
Quarter: 2018Q4

REPORT INFORMATION
  Report Type: Spontaneous
  Country: US (occurrence: US)
  Receive Date: 20181009
  Receipt Date: 20181009
  Transmission Date: 20190205
  Serious: No
  Sender: FDA-Public Use
  Company Number: US-VIIV HEALTHCARE LIMITED-US2018GSK179824

PATIENT
  Age: 53 Year
  Sex: Male

DRUGS (1)
  1. JULUCA [Suspect]
     Active Substance: DOLUTEGRAVIR SODIUM\RILPIVIRINE HYDROCHLORIDE
     Indication: ANTIRETROVIRAL THERAPY
     Dosage: UNK

REACTIONS (2)
  - Gastrooesophageal reflux disease [Unknown]
  - Condition aggravated [Unknown]
